FAERS Safety Report 23874975 (Version 1)
Quarter: 2024Q2

REPORT INFORMATION
  Report Type: Spontaneous
  Country: US (occurrence: None)
  Receive Date: 20240518
  Receipt Date: 20240518
  Transmission Date: 20240716
  Serious: Yes (Other)
  Sender: FDA-Public Use
  Company Number: None

PATIENT
  Age: 25 Year
  Sex: Male
  Weight: 57.6 kg

DRUGS (10)
  1. SARECYCLINE [Suspect]
     Active Substance: SARECYCLINE
     Indication: Acne
     Dosage: 1 TABLET DAILY ORAL
     Route: 048
     Dates: start: 20240514, end: 20240516
  2. PROPRANOLOL [Concomitant]
  3. KLONOPIN [Concomitant]
     Active Substance: CLONAZEPAM
  4. ZOFRAN [Concomitant]
     Active Substance: ONDANSETRON HYDROCHLORIDE
  5. XANAX [Concomitant]
     Active Substance: ALPRAZOLAM
  6. MINOXIDIL [Concomitant]
     Active Substance: MINOXIDIL
  7. IBUPROFEN [Concomitant]
     Active Substance: IBUPROFEN
  8. ACETAMINOPHEN [Concomitant]
     Active Substance: ACETAMINOPHEN
  9. VITAMIN B [Concomitant]
     Active Substance: VITAMIN B
  10. apple cider vinegar supplement [Concomitant]

REACTIONS (14)
  - Headache [None]
  - Intracranial pressure increased [None]
  - Eye pain [None]
  - Nausea [None]
  - Abdominal pain upper [None]
  - Dizziness [None]
  - Disorientation [None]
  - Autoscopy [None]
  - Dissociation [None]
  - Feeling abnormal [None]
  - Tremor [None]
  - Tremor [None]
  - Metamorphopsia [None]
  - Syncope [None]

NARRATIVE: CASE EVENT DATE: 20240514
